FAERS Safety Report 20117883 (Version 1)
Quarter: 2021Q4

REPORT INFORMATION
  Report Type: Spontaneous
  Country: US (occurrence: US)
  Receive Date: 20211126
  Receipt Date: 20211126
  Transmission Date: 20220303
  Serious: Yes (Death, Hospitalization)
  Sender: FDA-Public Use
  Company Number: US-STRIDES ARCOLAB LIMITED-2021SP030241

PATIENT
  Sex: Male

DRUGS (5)
  1. PREDNISOLONE [Suspect]
     Active Substance: PREDNISOLONE
     Indication: Liver transplant
     Dosage: 5 MILLIGRAM, PER DAY
     Route: 065
  2. MYCOPHENOLATE MOFETIL [Suspect]
     Active Substance: MYCOPHENOLATE MOFETIL
     Indication: Liver transplant
     Dosage: UNK
     Route: 065
  3. TACROLIMUS [Suspect]
     Active Substance: TACROLIMUS
     Indication: Liver transplant
     Dosage: UNK
     Route: 065
  4. METHYLPREDNISOLONE [Suspect]
     Active Substance: METHYLPREDNISOLONE
     Indication: Liver transplant
     Dosage: UNK
     Route: 065
  5. METHYLPREDNISOLONE [Suspect]
     Active Substance: METHYLPREDNISOLONE
     Indication: Transplant rejection
     Dosage: UNK
     Route: 065

REACTIONS (15)
  - Toxic encephalopathy [Fatal]
  - Hepatic cirrhosis [Fatal]
  - Shock [Fatal]
  - Acute kidney injury [Fatal]
  - Pneumonia aspiration [Fatal]
  - Nocardiosis [Fatal]
  - Cutaneous nocardiosis [Fatal]
  - Central nervous system fungal infection [Fatal]
  - Transplant rejection [Unknown]
  - Herpes simplex [Unknown]
  - Cytomegalovirus infection [Unknown]
  - Large intestine infection [Unknown]
  - Subcutaneous abscess [Unknown]
  - Fungal abscess central nervous system [Unknown]
  - Fungal infection [Unknown]
